FAERS Safety Report 4850672-2 (Version None)
Quarter: 2005Q4

REPORT INFORMATION
  Report Type: 
  Country: None (occurrence: None)
  Receive Date: 20051208
  Receipt Date: 20051128
  Transmission Date: 20060501
  Serious: Yes (Hospitalization, Other)
  Sender: FDA-Public Use
  Company Number: HP200500090

PATIENT
  Age: 62 Year
  Sex: Male
  Weight: 83.9 kg

DRUGS (5)
  1. CLOBETASOL PROPIONATE [Suspect]
     Indication: PEMPHIGOID
     Dosage: PRN, BUCCAL
     Route: 002
     Dates: start: 20000101, end: 20050701
  2. CELLCEPT [Concomitant]
  3. LIPITOR /NET/(ATORVASTATIN CALCIUM) [Concomitant]
  4. PREDNISONE [Concomitant]
  5. MONOPRIL [Concomitant]

REACTIONS (6)
  - ADRENAL MASS [None]
  - CONDITION AGGRAVATED [None]
  - INCORRECT ROUTE OF DRUG ADMINISTRATION [None]
  - LUNG DISORDER [None]
  - OFF LABEL USE [None]
  - PNEUMONIA [None]
